FAERS Safety Report 9783815 (Version 1)
Quarter: 2013Q4

REPORT INFORMATION
  Report Type: Spontaneous
  Country: CH (occurrence: CH)
  Receive Date: 20131226
  Receipt Date: 20131226
  Transmission Date: 20140711
  Serious: Yes (Hospitalization)
  Sender: FDA-Public Use
  Company Number: CH-BAYER-2013-154699

PATIENT
  Age: 50 Year
  Sex: Male

DRUGS (4)
  1. ASPIRIN CARDIO [Suspect]
     Dosage: 1 DF, QD
     Route: 048
     Dates: end: 20131108
  2. TEGRETOL [Suspect]
     Indication: SIMPLE PARTIAL SEIZURES
     Dosage: 200 MG, TID
     Route: 048
  3. TEGRETOL [Suspect]
     Indication: SIMPLE PARTIAL SEIZURES
  4. LUMINAL [Concomitant]
     Dosage: 75 MG, QD
     Route: 048

REACTIONS (4)
  - Haemorrhage intracranial [Recovering/Resolving]
  - Hemiparesis [Recovered/Resolved]
  - Thrombocytopenia [Recovered/Resolved]
  - Leukopenia [Not Recovered/Not Resolved]
